FAERS Safety Report 4918497-7 (Version None)
Quarter: 2006Q1

REPORT INFORMATION
  Report Type: 
  Country: None (occurrence: None)
  Receive Date: 20060217
  Receipt Date: 20060217
  Transmission Date: 20060701
  Serious: Yes (Hospitalization)
  Sender: FDA-Public Use
  Company Number: None

PATIENT
  Sex: Female

DRUGS (1)
  1. PERCOCET-5 [Suspect]
     Indication: PAIN
     Dosage: 1 TABLET X 1 DOSE PO
     Route: 048
     Dates: start: 20060127, end: 20060127

REACTIONS (1)
  - DOCUMENTED HYPERSENSITIVITY TO ADMINISTERED DRUG [None]
